FAERS Safety Report 6260644-1 (Version None)
Quarter: 2009Q3

REPORT INFORMATION
  Report Type: 
  Country: None (occurrence: None)
  Receive Date: 20090708
  Receipt Date: 20090703
  Transmission Date: 20100115
  Serious: No
  Sender: FDA-Public Use
  Company Number: JP-B.I. PHARMACEUTICALS,INC./RIDGEFIELD-2009-BP-07515YA

PATIENT
  Sex: Male

DRUGS (1)
  1. HARNAL (TAMSULOSIN) ORODISPERSABLE CR [Suspect]
     Dosage: 0.4 MG
     Route: 048

REACTIONS (1)
  - ARRHYTHMIA [None]
